FAERS Safety Report 5241627-7 (Version None)
Quarter: 2007Q1

REPORT INFORMATION
  Report Type: 
  Country: None (occurrence: None)
  Receive Date: 20070220
  Receipt Date: 20070213
  Transmission Date: 20070707
  Serious: Yes (Other)
  Sender: FDA-Public Use
  Company Number: US-MERCK-0702USA02469

PATIENT
  Age: 34 Year
  Sex: Male

DRUGS (3)
  1. ZETIA [Suspect]
     Route: 048
     Dates: start: 20060101
  2. TEGRETOL [Concomitant]
     Indication: EPILEPSY
     Route: 065
  3. [THERAPY UNSPECIFIED] [Concomitant]
     Indication: EPILEPSY
     Route: 065

REACTIONS (2)
  - ANTICONVULSANT DRUG LEVEL DECREASED [None]
  - CONVULSION [None]
